FAERS Safety Report 21955189 (Version 2)
Quarter: 2023Q1

REPORT INFORMATION
  Report Type: Report from Study
  Country: US (occurrence: US)
  Receive Date: 20230206
  Receipt Date: 20230209
  Transmission Date: 20230417
  Serious: No
  Sender: FDA-Public Use
  Company Number: US-002147023-NVSC2023US022214

PATIENT
  Age: 74 Year
  Sex: Female

DRUGS (2)
  1. LEQVIO [Suspect]
     Active Substance: INCLISIRAN SODIUM
     Indication: Product used for unknown indication
     Dosage: FIRST INJECTION
     Route: 058
     Dates: start: 20220415
  2. LEQVIO [Suspect]
     Active Substance: INCLISIRAN SODIUM
     Dosage: SECOND INJECTION
     Route: 058
     Dates: start: 20220715

REACTIONS (2)
  - Injection site discomfort [Unknown]
  - Injection site pain [Unknown]

NARRATIVE: CASE EVENT DATE: 20220715
